FAERS Safety Report 4473055-6 (Version None)
Quarter: 2004Q4

REPORT INFORMATION
  Report Type: 
  Country: None (occurrence: None)
  Receive Date: 20041007
  Receipt Date: 20041007
  Transmission Date: 20050328
  Serious: No
  Sender: FDA-Public Use
  Company Number: None

PATIENT
  Age: 73 Year
  Sex: Female
  Weight: 74.8435 kg

DRUGS (1)
  1. SYNERCID [Suspect]
     Dosage: 500 MG Q 24
     Dates: start: 20040921, end: 20041005

REACTIONS (4)
  - CHEST PAIN [None]
  - DIARRHOEA [None]
  - NAUSEA [None]
  - RASH [None]
